FAERS Safety Report 18197699 (Version 5)
Quarter: 2020Q4

REPORT INFORMATION
  Report Type: Spontaneous
  Country: US (occurrence: US)
  Receive Date: 20200826
  Receipt Date: 20201116
  Transmission Date: 20210113
  Serious: No
  Sender: FDA-Public Use
  Company Number: US-PFIZER INC-2020328137

PATIENT
  Age: 34 Year
  Sex: Female
  Weight: 68.04 kg

DRUGS (3)
  1. LYRICA [Suspect]
     Active Substance: PREGABALIN
     Indication: PAIN
     Dosage: UNK
  2. LYRICA [Suspect]
     Active Substance: PREGABALIN
     Dosage: UNK
  3. LYRICA [Suspect]
     Active Substance: PREGABALIN
     Indication: THORACIC OUTLET SYNDROME
     Dosage: 200 MG, 3X/DAY
     Route: 048
     Dates: start: 20200714

REACTIONS (7)
  - Weight increased [Unknown]
  - Dysphagia [Unknown]
  - Dysphonia [Unknown]
  - Dry mouth [Unknown]
  - Choking sensation [Unknown]
  - Withdrawal syndrome [Unknown]
  - Feeling abnormal [Unknown]

NARRATIVE: CASE EVENT DATE: 2020
